FAERS Safety Report 10403921 (Version 2)
Quarter: 2014Q3

REPORT INFORMATION
  Report Type: Spontaneous
  Country: US (occurrence: US)
  Receive Date: 20140822
  Receipt Date: 20140908
  Transmission Date: 20150326
  Serious: Yes (Hospitalization, Other)
  Sender: FDA-Public Use
  Company Number: US-009507513-1408USA011333

PATIENT
  Sex: Female

DRUGS (4)
  1. PROVENTIL [Concomitant]
     Active Substance: ALBUTEROL
  2. DULERA [Suspect]
     Active Substance: FORMOTEROL FUMARATE DIHYDRATE\MOMETASONE FUROATE
     Indication: ASTHMA
     Dosage: 100/5 MCG / 2 PUFFS TWICE A DAY
     Route: 055
  3. OXYGEN. [Concomitant]
     Active Substance: OXYGEN
  4. THEOPHYLLINE [Concomitant]
     Active Substance: THEOPHYLLINE
     Route: 048

REACTIONS (10)
  - Lung neoplasm malignant [Recovered/Resolved]
  - Incorrect dose administered [Unknown]
  - Rehabilitation therapy [Recovered/Resolved]
  - Product container issue [Unknown]
  - Hip fracture [Recovered/Resolved]
  - Walking aid user [Not Recovered/Not Resolved]
  - Dyspnoea [Unknown]
  - Lung operation [Recovered/Resolved]
  - Internal fixation of fracture [Recovered/Resolved]
  - Fall [Recovered/Resolved]

NARRATIVE: CASE EVENT DATE: 2005
